FAERS Safety Report 16838588 (Version 1)
Quarter: 2019Q3

REPORT INFORMATION
  Report Type: Spontaneous
  Country: US (occurrence: US)
  Receive Date: 20190923
  Receipt Date: 20190923
  Transmission Date: 20191005
  Serious: No
  Sender: FDA-Public Use
  Company Number: US-SUN PHARMACEUTICAL INDUSTRIES LTD-2019R1-209053

PATIENT
  Sex: Female
  Weight: 54.43 kg

DRUGS (1)
  1. BACTRIM [Suspect]
     Active Substance: SULFAMETHOXAZOLE\TRIMETHOPRIM
     Indication: BRONCHITIS
     Dosage: 1 TABLET, BID
     Route: 048
     Dates: start: 20181230, end: 20190108

REACTIONS (2)
  - Asthenia [Recovering/Resolving]
  - Eating disorder [Recovering/Resolving]
